FAERS Safety Report 19705152 (Version 1)
Quarter: 2021Q3

REPORT INFORMATION
  Report Type: Spontaneous
  Country: MK (occurrence: MK)
  Receive Date: 20210816
  Receipt Date: 20210816
  Transmission Date: 20211014
  Serious: No
  Sender: FDA-Public Use
  Company Number: MK-LUPIN PHARMACEUTICALS INC.-2021-14726

PATIENT
  Age: 49 Year
  Sex: Female

DRUGS (18)
  1. CICLOSPORIN A [Concomitant]
     Active Substance: CYCLOSPORINE
     Dosage: DOSE REDUCED TO 50 PERCENT
     Route: 065
  2. CARVEDILOL. [Concomitant]
     Active Substance: CARVEDILOL
     Indication: HYPERTENSION
     Dosage: 6.25 MILLIGRAM, BID
     Route: 048
  3. AZITHROMYCIN ANHYDROUS. [Suspect]
     Active Substance: AZITHROMYCIN ANHYDROUS
     Indication: COVID-19
     Dosage: 500 MILLIGRAM, QD
     Route: 065
     Dates: start: 202003
  4. PARACETAMOL [Suspect]
     Active Substance: ACETAMINOPHEN
     Indication: COVID-19
     Dosage: UNK UNK, PRN (AS REQUIRED)
     Route: 065
  5. CLEXANE [Suspect]
     Active Substance: ENOXAPARIN SODIUM
     Indication: COVID-19
     Dosage: UNK
     Route: 058
  6. BASILIXIMAB [Concomitant]
     Active Substance: BASILIXIMAB
     Indication: IMMUNOSUPPRESSANT DRUG THERAPY
     Dosage: UNK
     Route: 065
  7. MYCOPHENOLIC ACID. [Concomitant]
     Active Substance: MYCOPHENOLIC ACID
     Indication: IMMUNOSUPPRESSANT DRUG THERAPY
     Dosage: UNK
     Route: 065
  8. MYCOPHENOLIC ACID. [Concomitant]
     Active Substance: MYCOPHENOLIC ACID
     Dosage: 1 GRAM, QD?DOSE REDUCED
     Route: 065
  9. LOSARTAN. [Concomitant]
     Active Substance: LOSARTAN
     Indication: HYPERTENSION
     Dosage: 50 MILLIGRAM, BID
     Route: 048
  10. VITAMIN C [Concomitant]
     Active Substance: ASCORBIC ACID
     Indication: SUPPORTIVE CARE
     Dosage: UNK
     Route: 048
  11. CICLOSPORIN A [Concomitant]
     Active Substance: CYCLOSPORINE
     Indication: IMMUNOSUPPRESSANT DRUG THERAPY
     Dosage: UNK
     Route: 065
  12. NIFEDIPINE. [Concomitant]
     Active Substance: NIFEDIPINE
     Indication: HYPERTENSION
     Dosage: 20 MILLIGRAM, TID
     Route: 048
  13. DECORTIN [Concomitant]
     Active Substance: PREDNISONE
     Dosage: 15 MILLIGRAM UNK
     Route: 048
  14. POTASSIUM [Concomitant]
     Active Substance: POTASSIUM
     Indication: SUPPLEMENTATION THERAPY
     Dosage: UNK
     Route: 065
  15. CEFTRIAXONE. [Suspect]
     Active Substance: CEFTRIAXONE
     Indication: COVID-19
     Dosage: 2 GRAM, BID
     Route: 042
     Dates: start: 202003
  16. DECORTIN [Concomitant]
     Active Substance: PREDNISONE
     Indication: IMMUNOSUPPRESSANT DRUG THERAPY
     Dosage: 5 MILLIGRAM UNK
     Route: 065
  17. CIPROFLOXACIN. [Concomitant]
     Active Substance: CIPROFLOXACIN
     Indication: INFLUENZA
     Dosage: 500 MILLIGRAM, BID
     Route: 048
  18. TAMIFLU [Concomitant]
     Active Substance: OSELTAMIVIR PHOSPHATE
     Indication: INFLUENZA
     Dosage: 75 MILLIGRAM, BID
     Route: 048

REACTIONS (1)
  - Off label use [Unknown]
